FAERS Safety Report 25637588 (Version 1)
Quarter: 2025Q3

REPORT INFORMATION
  Report Type: Spontaneous
  Country: CN (occurrence: CN)
  Receive Date: 20250804
  Receipt Date: 20250804
  Transmission Date: 20251020
  Serious: Yes (Other)
  Sender: ROCHE
  Company Number: CN-ROCHE-10000350307

PATIENT
  Age: 83 Year
  Sex: Male

DRUGS (5)
  1. OBINUTUZUMAB [Suspect]
     Active Substance: OBINUTUZUMAB
     Indication: Nephrotic syndrome
     Route: 050
     Dates: start: 20250712, end: 20250712
  2. SODIUM CHLORIDE [Concomitant]
     Active Substance: SODIUM CHLORIDE
     Route: 050
     Dates: start: 20250712, end: 20250712
  3. NITROGLYCERIN [Concomitant]
     Active Substance: NITROGLYCERIN
  4. DESLANOSIDE [Concomitant]
     Active Substance: DESLANOSIDE
     Route: 042
  5. BUMETANIDE [Concomitant]
     Active Substance: BUMETANIDE

REACTIONS (4)
  - Cardiac failure [Recovered/Resolved]
  - Hypersensitivity [Unknown]
  - Acidosis [Unknown]
  - Intentional product use issue [Unknown]

NARRATIVE: CASE EVENT DATE: 20250712
